FAERS Safety Report 6845901-X (Version None)
Quarter: 2010Q3

REPORT INFORMATION
  Report Type: 
  Country: None (occurrence: None)
  Receive Date: 20100715
  Receipt Date: 20070901
  Transmission Date: 20110219
  Serious: No
  Sender: FDA-Public Use
  Company Number: US-PFIZER INC-2007073988

PATIENT
  Sex: Female
  Weight: 65.9 kg

DRUGS (14)
  1. CHANTIX [Suspect]
     Indication: SMOKING CESSATION THERAPY
     Route: 048
     Dates: start: 20070804
  2. SPIRIVA [Concomitant]
  3. PREDNISONE [Concomitant]
  4. ADVAIR DISKUS 100/50 [Concomitant]
  5. UNIPHYL [Concomitant]
  6. PRILOSEC [Concomitant]
  7. DUONEB [Concomitant]
  8. VERAPAMIL [Concomitant]
  9. LOTENSIN [Concomitant]
  10. DYAZIDE [Concomitant]
  11. MULTI-VITAMINS [Concomitant]
  12. ATIVAN [Concomitant]
  13. CALCIUM [Concomitant]
  14. OXYGEN [Concomitant]

REACTIONS (1)
  - INSOMNIA [None]
